FAERS Safety Report 8373202-X (Version None)
Quarter: 2012Q2

REPORT INFORMATION
  Report Type: 
  Country: None (occurrence: None)
  Receive Date: 20120521
  Receipt Date: 20120514
  Transmission Date: 20120825
  Serious: Yes (Life-Threatening, Hospitalization, Other)
  Sender: FDA-Public Use
  Company Number: US-PFIZER INC-2011182210

PATIENT
  Sex: Female

DRUGS (8)
  1. METFORMIN HCL [Suspect]
     Indication: TYPE 2 DIABETES MELLITUS
     Dosage: 2000 MG, UNK
  2. LANTUS [Suspect]
     Indication: TYPE 2 DIABETES MELLITUS
     Dosage: 30 IU, UNK
  3. MEDROL [Concomitant]
     Dosage: UNK
     Dates: start: 20110621, end: 20110625
  4. CELEBREX [Suspect]
  5. HYDROCHLOROTHIAZIDE AND LISINOPRIL [Suspect]
  6. BLINDED THERAPY [Suspect]
     Indication: TYPE 2 DIABETES MELLITUS
     Dosage: UNK
     Dates: start: 20100824
  7. ACETYLSALICYLIC ACID [Concomitant]
  8. TRIAMCINOLONE [Concomitant]
     Dosage: UNK
     Dates: start: 20110621, end: 20110630

REACTIONS (3)
  - RENAL FAILURE ACUTE [None]
  - FLUID OVERLOAD [None]
  - UROSEPSIS [None]
